FAERS Safety Report 4830777-2 (Version None)
Quarter: 2005Q4

REPORT INFORMATION
  Report Type: 
  Country: None (occurrence: None)
  Receive Date: 20051114
  Receipt Date: 20051101
  Transmission Date: 20060501
  Serious: Yes (Other)
  Sender: FDA-Public Use
  Company Number: US016292

PATIENT
  Age: 66 Year
  Sex: Male

DRUGS (13)
  1. TRISENOX [Suspect]
     Indication: ACUTE PROMYELOCYTIC LEUKAEMIA
     Dosage: 9.9 MG QD INTRAVENOUS DRIP
     Route: 041
     Dates: start: 20050624, end: 20050624
  2. TRISENOX [Suspect]
     Indication: ACUTE PROMYELOCYTIC LEUKAEMIA
     Dosage: 9.9 MG QD INTRAVENOUS DRIP
     Route: 041
     Dates: start: 20050627, end: 20050701
  3. TRISENOX [Suspect]
     Indication: ACUTE PROMYELOCYTIC LEUKAEMIA
     Dosage: 9.9 MG QD INTRAVENOUS DRIP
     Route: 041
     Dates: start: 20050704, end: 20050708
  4. TRISENOX [Suspect]
     Indication: ACUTE PROMYELOCYTIC LEUKAEMIA
     Dosage: 9.9 MG QD INTRAVENOUS DRIP
     Route: 041
     Dates: start: 20050711, end: 20050715
  5. TRISENOX [Suspect]
     Indication: ACUTE PROMYELOCYTIC LEUKAEMIA
     Dosage: 9.9 MG QD INTRAVENOUS DRIP
     Route: 041
     Dates: start: 20050719, end: 20050722
  6. TRISENOX [Suspect]
     Indication: ACUTE PROMYELOCYTIC LEUKAEMIA
     Dosage: 9.9 MG QD INTRAVENOUS DRIP
     Route: 041
     Dates: start: 20050725, end: 20050729
  7. PRAVASTATIN SODIUM [Concomitant]
  8. LANSOPRAZOLE [Concomitant]
  9. TAMSULOSIN HYDROCHLORIDE [Concomitant]
  10. REBAMIPIDE [Concomitant]
  11. ALLOPURINOL [Concomitant]
  12. TRIAZOLAM [Concomitant]
  13. MECOBALAMIN [Concomitant]

REACTIONS (1)
  - WHITE BLOOD CELL COUNT DECREASED [None]
